FAERS Safety Report 20096684 (Version 1)
Quarter: 2021Q4

REPORT INFORMATION
  Report Type: Spontaneous
  Country: US (occurrence: None)
  Receive Date: 20211120
  Receipt Date: 20211120
  Transmission Date: 20220303
  Serious: No
  Sender: FDA-Public Use
  Company Number: None

PATIENT
  Age: 77 Year
  Sex: Male
  Weight: 76.5 kg

DRUGS (4)
  1. CEQUA [Suspect]
     Active Substance: CYCLOSPORINE
     Indication: Dry eye
     Dosage: FREQUENCY : TWICE A DAY;?
     Route: 047
     Dates: start: 20211101, end: 20211120
  2. AVODART [Concomitant]
     Active Substance: DUTASTERIDE
  3. ALFUFLOSIN [Concomitant]
  4. VITAMINS [Concomitant]
     Active Substance: VITAMINS

REACTIONS (3)
  - Instillation site pruritus [None]
  - Instillation site discomfort [None]
  - Blepharospasm [None]
